FAERS Safety Report 25258474 (Version 1)
Quarter: 2025Q2

REPORT INFORMATION
  Report Type: Spontaneous
  Country: GR (occurrence: GR)
  Receive Date: 20250501
  Receipt Date: 20250501
  Transmission Date: 20250717
  Serious: Yes (Hospitalization)
  Sender: AMGEN
  Company Number: GR-AMGEN-GRCSP2025082508

PATIENT
  Sex: Female

DRUGS (1)
  1. OTEZLA [Suspect]
     Active Substance: APREMILAST
     Indication: Product used for unknown indication
     Route: 065

REACTIONS (8)
  - Hypertension [Unknown]
  - Heart rate increased [Unknown]
  - Weight decreased [Unknown]
  - Nausea [Unknown]
  - Pyrexia [Unknown]
  - Back pain [Unknown]
  - Dyspnoea [Unknown]
  - Ill-defined disorder [Unknown]
